FAERS Safety Report 11226628 (Version 3)
Quarter: 2016Q4

REPORT INFORMATION
  Report Type: Spontaneous
  Country: US (occurrence: US)
  Receive Date: 20150630
  Receipt Date: 20161007
  Transmission Date: 20170206
  Serious: Yes (Other)
  Sender: FDA-Public Use
  Company Number: US-SA-2015SA044245

PATIENT
  Age: 52 Year
  Sex: Female

DRUGS (1)
  1. AUBAGIO [Suspect]
     Active Substance: TERIFLUNOMIDE
     Indication: MULTIPLE SCLEROSIS
     Route: 048
     Dates: start: 20141230

REACTIONS (13)
  - Multiple sclerosis relapse [Unknown]
  - Fatigue [Unknown]
  - Confusional state [Unknown]
  - Tremor [Unknown]
  - Weight decreased [Unknown]
  - Pain in extremity [Recovered/Resolved]
  - Hypoaesthesia [Unknown]
  - Decreased appetite [Unknown]
  - Arthropathy [Unknown]
  - Pain in extremity [Unknown]
  - Vision blurred [Unknown]
  - Nausea [Unknown]
  - Pain [Unknown]

NARRATIVE: CASE EVENT DATE: 20150401
